FAERS Safety Report 16375949 (Version 1)
Quarter: 2019Q2

REPORT INFORMATION
  Report Type: Spontaneous
  Country: GB (occurrence: GB)
  Receive Date: 20190531
  Receipt Date: 20190531
  Transmission Date: 20190711
  Serious: Yes (Life-Threatening, Hospitalization, Other)
  Sender: FDA-Public Use
  Company Number: GB-TEVA-2019-GB-1056445

PATIENT
  Age: 70 Year
  Sex: Female
  Weight: 56 kg

DRUGS (14)
  1. OMEPRAZOLE. [Concomitant]
     Active Substance: OMEPRAZOLE
     Dates: start: 20171218
  2. FEXOFENADINE [Concomitant]
     Active Substance: FEXOFENADINE\FEXOFENADINE HYDROCHLORIDE
     Dates: start: 20190424
  3. QUETIAPINE. [Concomitant]
     Active Substance: QUETIAPINE
     Dosage: TAKE ONE TO TWO A NIGHT
     Dates: start: 20190315, end: 20190316
  4. SODIUM ALGINATE [Concomitant]
     Active Substance: SODIUM ALGINATE
     Dosage: 5ML OR 10ML 4 TIMES/DAY
     Dates: start: 20190111
  5. PROMETHAZINE HYDROCHLORIDE. [Concomitant]
     Active Substance: PROMETHAZINE HYDROCHLORIDE
     Dosage: TAKE ONE TO TWO AT NIGHT
     Dates: start: 20190403, end: 20190404
  6. CO-AMOXICLAV [Concomitant]
     Active Substance: AMOXICILLIN\CLAVULANATE POTASSIUM
     Dates: start: 20190308, end: 20190315
  7. DIAZEPAM. [Concomitant]
     Active Substance: DIAZEPAM
     Dates: start: 20190415, end: 20190422
  8. ZOPICLONE [Concomitant]
     Active Substance: ZOPICLONE
     Dosage: AT NIGHT
     Dates: start: 20190415, end: 20190416
  9. NITROFURANTOIN. [Concomitant]
     Active Substance: NITROFURANTOIN
     Dates: start: 20190415, end: 20190418
  10. MIRTAZAPINE. [Concomitant]
     Active Substance: MIRTAZAPINE
     Dates: start: 20190111, end: 20190403
  11. VENLAFAXINE [Suspect]
     Active Substance: VENLAFAXINE HYDROCHLORIDE
     Route: 048
     Dates: start: 20190403
  12. TAMOXIFEN [Concomitant]
     Active Substance: TAMOXIFEN
     Dates: start: 20180921
  13. RANITIDINE. [Concomitant]
     Active Substance: RANITIDINE
     Dates: start: 20190123, end: 20190424
  14. LEVOTHYROXINE. [Concomitant]
     Active Substance: LEVOTHYROXINE
     Dosage: EACH MORNING
     Dates: start: 20171218

REACTIONS (1)
  - Hyponatraemia [Recovering/Resolving]

NARRATIVE: CASE EVENT DATE: 20190416
